FAERS Safety Report 6004123-5 (Version None)
Quarter: 2008Q4

REPORT INFORMATION
  Report Type: 
  Country: None (occurrence: None)
  Receive Date: 20081216
  Receipt Date: 20081209
  Transmission Date: 20090506
  Serious: No
  Sender: FDA-Public Use
  Company Number: US-JNJFOC-20081202660

PATIENT
  Sex: Male
  Weight: 129.28 kg

DRUGS (12)
  1. FENTANYL TRANSDERMAL SYSTEM [Suspect]
     Indication: BACK PAIN
     Route: 062
  2. ALLOPURINOL [Concomitant]
     Indication: NEPHROLITHIASIS
     Route: 048
  3. ATENOLO [Concomitant]
     Indication: HYPERTENSION
     Route: 048
  4. LORATADINE [Concomitant]
     Indication: MULTIPLE ALLERGIES
     Route: 048
  5. LANTUS [Concomitant]
     Indication: DIABETES MELLITUS
     Dosage: 140 UNITS/SOLUTION/100 U/L EVERY EVENING
     Route: 058
  6. GLUCOTROL XL [Concomitant]
     Indication: DIABETES MELLITUS
     Route: 048
  7. PRILOSEC [Concomitant]
     Indication: GASTROOESOPHAGEAL REFLUX DISEASE
     Route: 048
  8. LISINOPRIL [Concomitant]
     Indication: HYPERTENSION
     Route: 048
  9. LASIX [Concomitant]
     Indication: OEDEMA
     Route: 048
  10. LOPID [Concomitant]
     Indication: HYPERLIPIDAEMIA
     Route: 048
  11. VICODIN [Concomitant]
     Indication: BREAKTHROUGH PAIN
     Dosage: 10 MGM/TABLET/10MGM 1 EVERY 6 HOURS AS NEEDED
     Route: 048
  12. PRAVASTATIN [Concomitant]
     Indication: HYPERCHOLESTEROLAEMIA
     Route: 048

REACTIONS (1)
  - WRONG TECHNIQUE IN DRUG USAGE PROCESS [None]
